FAERS Safety Report 24765261 (Version 1)
Quarter: 2024Q4

REPORT INFORMATION
  Report Type: Report from Study
  Country: CA (occurrence: CA)
  Receive Date: 20241223
  Receipt Date: 20241223
  Transmission Date: 20250114
  Serious: Yes (Other)
  Sender: ROCHE
  Company Number: US-ROCHE-RCA2527977

PATIENT

DRUGS (1)
  1. BEVACIZUMAB [Suspect]
     Active Substance: BEVACIZUMAB
     Indication: Glioblastoma multiforme
     Route: 065

REACTIONS (12)
  - Thrombocytopenia [Unknown]
  - Hypertension [Unknown]
  - Deep vein thrombosis [Unknown]
  - Fatigue [Unknown]
  - Seizure [Unknown]
  - Neutropenia [Unknown]
  - Leukopenia [Unknown]
  - Pulmonary embolism [Unknown]
  - Proteinuria [Unknown]
  - Cerebrovascular accident [Unknown]
  - Myocardial infarction [Unknown]
  - Cerebral haemorrhage [Unknown]
